FAERS Safety Report 11350413 (Version 3)
Quarter: 2015Q4

REPORT INFORMATION
  Report Type: Spontaneous
  Country: GB (occurrence: GB)
  Receive Date: 20150807
  Receipt Date: 20151113
  Transmission Date: 20160304
  Serious: Yes (Death)
  Sender: FDA-Public Use
  Company Number: GB-BAYER-2015-389494

PATIENT
  Age: 32 Year
  Sex: Male

DRUGS (1)
  1. ANTIHEMOPHILIC FACTOR (HUMAN) NOS [Suspect]
     Active Substance: ANTIHEMOPHILIC FACTOR HUMAN
     Dosage: UNKNOWN DOSE

REACTIONS (4)
  - Acquired immunodeficiency syndrome [Fatal]
  - Infection [Fatal]
  - Hepatitis C [Fatal]
  - General physical health deterioration [None]

NARRATIVE: CASE EVENT DATE: 1986
